FAERS Safety Report 12155202 (Version 1)
Quarter: 2016Q1

REPORT INFORMATION
  Report Type: Spontaneous
  Country: BR (occurrence: BR)
  Receive Date: 20160307
  Receipt Date: 20160307
  Transmission Date: 20160526
  Serious: Yes (Hospitalization, Other)
  Sender: FDA-Public Use
  Company Number: BR-PFIZER INC-2016135274

PATIENT
  Age: 76 Year
  Sex: Male

DRUGS (1)
  1. XALATAN [Suspect]
     Active Substance: LATANOPROST
     Indication: INTRAOCULAR PRESSURE INCREASED
     Dosage: 3 UG, 1 DROP IN EACH EYE, 1X/DAY
     Route: 047
     Dates: start: 20150923

REACTIONS (1)
  - Cerebrovascular accident [Unknown]
